FAERS Safety Report 13699390 (Version 4)
Quarter: 2017Q3

REPORT INFORMATION
  Report Type: Report from Study
  Country: None (occurrence: AU)
  Receive Date: 20170628
  Receipt Date: 20170711
  Transmission Date: 20171127
  Serious: Yes (Hospitalization)
  Sender: FDA-Public Use
  Company Number: AU-ABBVIE-17P-008-2019300-00

PATIENT
  Age: 72 Year
  Sex: Female

DRUGS (2)
  1. DUODOPA [Suspect]
     Active Substance: CARBIDOPA\LEVODOPA
     Dosage: LOWER DOSE,3.5ML/HR
     Route: 050
     Dates: start: 20170630
  2. DUODOPA [Suspect]
     Active Substance: CARBIDOPA\LEVODOPA
     Indication: PARKINSON^S DISEASE
     Dosage: 16 HOUR INFUSION
     Route: 050
     Dates: start: 20170621, end: 201706

REACTIONS (5)
  - Peritonitis [Unknown]
  - Stoma site discharge [Unknown]
  - Intestinal obstruction [Recovered/Resolved]
  - Clostridium test positive [Recovering/Resolving]
  - Device loosening [Unknown]

NARRATIVE: CASE EVENT DATE: 2017
